FAERS Safety Report 8525842 (Version 2)
Quarter: 2014Q2

REPORT INFORMATION
  Report Type: Report from Study
  Country: CA (occurrence: CA)
  Receive Date: 20120418
  Receipt Date: 20140609
  Transmission Date: 20141212
  Serious: Yes (Hospitalization)
  Sender: FDA-Public Use
  Company Number: PHHO2011CA08049

PATIENT
  Age: 9 Month
  Sex: Female
  Weight: 5.94 kg

DRUGS (3)
  1. BLINDED NO TREATMENT RECEIVED [Suspect]
     Indication: CYSTIC FIBROSIS
     Dosage: DOUBLE BLINDED
     Route: 055
     Dates: start: 20110419, end: 20110504
  2. BLINDED PLACEBO [Suspect]
     Indication: CYSTIC FIBROSIS
     Dosage: DOUBLE BLINDED
     Route: 055
     Dates: start: 20110419, end: 20110504
  3. BLINDED TOBRAMYCIN INHALATION POWDER [Suspect]
     Indication: CYSTIC FIBROSIS
     Dosage: DOUBLE BLINDED
     Route: 055
     Dates: start: 20110419, end: 20110504

REACTIONS (1)
  - Pseudomonas infection [Recovered/Resolved]
